FAERS Safety Report 4340790-X (Version None)
Quarter: 2004Q2

REPORT INFORMATION
  Report Type: 
  Country: None (occurrence: None)
  Receive Date: 20040419
  Receipt Date: 20030820
  Transmission Date: 20050107
  Serious: No
  Sender: FDA-Public Use
  Company Number: US-GLAXOSMITHKLINE-A0422742A

PATIENT
  Sex: Male

DRUGS (3)
  1. ESKALITH [Suspect]
     Dosage: 300MG PER DAY
     Route: 048
     Dates: start: 19780101
  2. TEGRETOL [Concomitant]
  3. PAMELOR [Concomitant]

REACTIONS (2)
  - SOMNOLENCE [None]
  - TREMOR [None]
